FAERS Safety Report 4963975-8 (Version None)
Quarter: 2006Q2

REPORT INFORMATION
  Report Type: 
  Country: None (occurrence: None)
  Receive Date: 20060405
  Receipt Date: 20060301
  Transmission Date: 20061013
  Serious: Yes (Hospitalization)
  Sender: FDA-Public Use
  Company Number: US-MERCK-0603USA00416

PATIENT
  Age: 60 Year
  Sex: Female
  Weight: 68 kg

DRUGS (21)
  1. VIOXX [Suspect]
     Indication: ARTHRITIS
     Route: 048
     Dates: start: 20010118, end: 20040927
  2. VIOXX [Suspect]
     Route: 048
     Dates: start: 20010118, end: 20040927
  3. FLOVENT [Concomitant]
     Route: 065
  4. SEREVENT [Concomitant]
     Route: 065
  5. COMBIVENT [Concomitant]
     Route: 065
  6. AGYRAX (MECLIZINE HYDROCHLORIDE) [Concomitant]
     Route: 065
  7. ZITHROMAX [Concomitant]
     Route: 065
  8. DETROL [Concomitant]
     Route: 065
  9. MYAMBUTOL [Concomitant]
     Route: 065
  10. VENTILAN (ALBUTEROL) [Concomitant]
     Route: 065
  11. LORAZEPAM [Concomitant]
     Route: 065
  12. KLOR-CON [Concomitant]
     Route: 065
  13. PREDNISONE [Concomitant]
     Route: 065
  14. FUROSEMIDE [Concomitant]
     Route: 065
  15. ADVAIR DISKUS 100/50 [Concomitant]
     Route: 065
  16. ACCOLATE [Concomitant]
     Route: 065
  17. INDAPAMIDE [Concomitant]
     Route: 065
  18. CLINDAMYCIN [Concomitant]
     Route: 065
  19. ZOCOR [Concomitant]
     Route: 048
  20. DIOVAN [Concomitant]
     Route: 065
  21. AMBIEN [Concomitant]
     Route: 065

REACTIONS (17)
  - ANXIETY [None]
  - ARTERIOSCLEROSIS [None]
  - BLOOD PRESSURE INCREASED [None]
  - BLOOD SODIUM DECREASED [None]
  - BRONCHITIS ACUTE [None]
  - BRONCHOSPASM [None]
  - CANDIDIASIS [None]
  - CARDIOMYOPATHY [None]
  - CEREBRAL INFARCTION [None]
  - CEREBROVASCULAR ACCIDENT [None]
  - EJECTION FRACTION DECREASED [None]
  - GLOSSITIS [None]
  - LOSS OF CONSCIOUSNESS [None]
  - NECK PAIN [None]
  - OSTEOARTHRITIS [None]
  - TACHYCARDIA [None]
  - URINARY TRACT INFECTION [None]
